FAERS Safety Report 6707891-X (Version None)
Quarter: 2010Q2

REPORT INFORMATION
  Report Type: 
  Country: None (occurrence: None)
  Receive Date: 20100503
  Receipt Date: 20090717
  Transmission Date: 20101027
  Serious: Yes (Hospitalization)
  Sender: FDA-Public Use
  Company Number: US-ASTRAZENECA-2009UW20342

PATIENT
  Age: 19 Year
  Sex: Female
  Weight: 56.2 kg

DRUGS (2)
  1. NEXIUM [Suspect]
     Indication: COELIAC DISEASE
     Route: 048
     Dates: start: 20090101, end: 20090701
  2. VITAMINS [Concomitant]

REACTIONS (5)
  - BLOOD SODIUM DECREASED [None]
  - DIZZINESS [None]
  - FATIGUE [None]
  - HEADACHE [None]
  - WEIGHT DECREASED [None]
